FAERS Safety Report 16397682 (Version 1)
Quarter: 2019Q2

REPORT INFORMATION
  Report Type: Spontaneous
  Country: GB (occurrence: GB)
  Receive Date: 20190606
  Receipt Date: 20190606
  Transmission Date: 20190711
  Serious: Yes (Other)
  Sender: FDA-Public Use
  Company Number: GB-ACCORD-131179

PATIENT
  Age: 56 Year
  Sex: Female
  Weight: 92.07 kg

DRUGS (5)
  1. CROMOGLICIC ACID [Concomitant]
     Active Substance: CROMOLYN
  2. CETIRIZINE [Concomitant]
     Active Substance: CETIRIZINE HYDROCHLORIDE
  3. OMEPRAZOLE. [Concomitant]
     Active Substance: OMEPRAZOLE
  4. RAMIPRIL. [Suspect]
     Active Substance: RAMIPRIL
     Indication: HYPERTENSION
     Dosage: ALSO TAKEN 2.5 MG FROM 03-OCT-2018 TO 29-OCT-2018,ALSO TAKEN 5 MG FROM 30-OCT-2018 TO 26-NOV-2018
     Route: 048
     Dates: start: 20180918, end: 20181002
  5. FEMOSTON-CONTI [Concomitant]
     Active Substance: DYDROGESTERONE\ESTRADIOL
     Dosage: 1MG/5MG

REACTIONS (2)
  - Sputum increased [Recovered/Resolved with Sequelae]
  - Cough [Recovered/Resolved]

NARRATIVE: CASE EVENT DATE: 20180925
